FAERS Safety Report 16588285 (Version 1)
Quarter: 2019Q3

REPORT INFORMATION
  Report Type: Report from Study
  Country: JP (occurrence: JP)
  Receive Date: 20190717
  Receipt Date: 20190717
  Transmission Date: 20191004
  Serious: Yes (Death, Other)
  Sender: FDA-Public Use
  Company Number: JP-BRISTOL-MYERS SQUIBB COMPANY-BMS-2018-032127

PATIENT
  Age: 56 Year
  Sex: Male
  Weight: 77 kg

DRUGS (1)
  1. NIVOLUMAB [Suspect]
     Active Substance: NIVOLUMAB
     Indication: MALIGNANT MELANOMA
     Dosage: 3 MG/KG, UNK
     Route: 065
     Dates: start: 20161213

REACTIONS (4)
  - Malignant neoplasm progression [Fatal]
  - Leukoderma [Not Recovered/Not Resolved]
  - Rash [Recovering/Resolving]
  - Lichen planus [Unknown]

NARRATIVE: CASE EVENT DATE: 20170607
